FAERS Safety Report 8544041-1 (Version None)
Quarter: 2012Q3

REPORT INFORMATION
  Report Type: 
  Country: None (occurrence: None)
  Receive Date: 20120727
  Receipt Date: 20120724
  Transmission Date: 20120928
  Serious: Yes (Death, Hospitalization, Other)
  Sender: FDA-Public Use
  Company Number: US-CELGENEUS-163-21880-12031798

PATIENT
  Sex: Male
  Weight: 87.168 kg

DRUGS (2)
  1. REVLIMID [Suspect]
     Indication: MYELODYSPLASTIC SYNDROME
     Dosage: 5 MILLIGRAM
     Route: 048
     Dates: start: 20120125
  2. PREDNISONE [Concomitant]
     Dosage: 60 MILLIGRAM
     Route: 048
     Dates: start: 20120215

REACTIONS (4)
  - RESPIRATORY ARREST [None]
  - DEATH [None]
  - INSOMNIA [None]
  - FALL [None]
